FAERS Safety Report 6456964-8 (Version None)
Quarter: 2009Q4

REPORT INFORMATION
  Report Type: 
  Country: None (occurrence: None)
  Receive Date: 20091125
  Receipt Date: 20091113
  Transmission Date: 20100525
  Serious: Yes (Other)
  Sender: FDA-Public Use
  Company Number: US-PFIZER INC-2009299353

PATIENT
  Sex: Female
  Weight: 89.796 kg

DRUGS (7)
  1. LYRICA [Suspect]
     Indication: FIBROMYALGIA
     Dosage: 100 MG,  2X/DAY
     Route: 048
     Dates: start: 20080801, end: 20080801
  2. LYRICA [Suspect]
     Indication: OSTEOARTHRITIS
  3. CYMBALTA [Concomitant]
     Dosage: UNK
  4. XANAX [Concomitant]
     Indication: PANIC ATTACK
     Dosage: UNK, AS NEEDED
  5. LASIX [Concomitant]
     Dosage: UNK
  6. CARDIZEM [Concomitant]
     Dosage: UNK
  7. ESTRACE [Concomitant]
     Dosage: UNK

REACTIONS (3)
  - IMPAIRED DRIVING ABILITY [None]
  - MEMORY IMPAIRMENT [None]
  - ROAD TRAFFIC ACCIDENT [None]
